FAERS Safety Report 5556848-3 (Version None)
Quarter: 2007Q4

REPORT INFORMATION
  Report Type: 
  Country: None (occurrence: None)
  Receive Date: 20071210
  Receipt Date: 20071210
  Transmission Date: 20080405
  Serious: Yes (Hospitalization)
  Sender: FDA-Public Use
  Company Number: None

PATIENT
  Age: 60 Year
  Sex: Male
  Weight: 62 kg

DRUGS (1)
  1. AZTREONAM [Suspect]
     Indication: RASH
     Dosage: 500 MG Q6HR IV
     Route: 042
     Dates: start: 20070410, end: 20070414

REACTIONS (1)
  - RASH [None]
